FAERS Safety Report 5036903-7 (Version None)
Quarter: 2006Q2

REPORT INFORMATION
  Report Type: 
  Country: None (occurrence: None)
  Receive Date: 20060622
  Receipt Date: 20060605
  Transmission Date: 20061013
  Serious: Yes (Other)
  Sender: FDA-Public Use
  Company Number: US200606001332

PATIENT
  Age: 63 Year
  Sex: Female
  Weight: 113.4 kg

DRUGS (8)
  1. CYMBALTA [Suspect]
     Indication: FIBROMYALGIA
     Dosage: 20 MG, DAILY (1/D),; 30 MG,; 20 MG
     Dates: end: 20060602
  2. CYMBALTA [Suspect]
     Indication: FIBROMYALGIA
     Dosage: 20 MG, DAILY (1/D),; 30 MG,; 20 MG
  3. CYMBALTA [Suspect]
     Indication: FIBROMYALGIA
     Dosage: 20 MG, DAILY (1/D),; 30 MG,; 20 MG
     Dates: start: 20060401
  4. ZYRTEC [Concomitant]
  5. SYNTHROID [Concomitant]
  6. ATACAND /SWE/(CANDESARTAN CILEXETIL) [Concomitant]
  7. LASIX [Concomitant]
  8. XANAX /USA/(ALPRAZOLAM) [Concomitant]

REACTIONS (19)
  - ABDOMINAL DISTENSION [None]
  - BREAST PAIN [None]
  - CONSTIPATION [None]
  - DIARRHOEA [None]
  - DYSPEPSIA [None]
  - FATIGUE [None]
  - FIBROMYALGIA [None]
  - FLUID RETENTION [None]
  - GASTRIC HAEMORRHAGE [None]
  - GASTRITIS [None]
  - HYPOAESTHESIA [None]
  - INSOMNIA [None]
  - IRRITABLE BOWEL SYNDROME [None]
  - NAUSEA [None]
  - OEDEMA PERIPHERAL [None]
  - PAIN IN EXTREMITY [None]
  - PARAESTHESIA [None]
  - PRURITUS [None]
  - WEIGHT INCREASED [None]
